FAERS Safety Report 8731477 (Version 2)
Quarter: 2012Q4

REPORT INFORMATION
  Report Type: 
  Country: FR (occurrence: FR)
  Receive Date: 20120820
  Receipt Date: 20120928
  Transmission Date: 20130627
  Serious: Yes (Life-Threatening, Hospitalization, Other)
  Sender: FDA-Public Use
  Company Number: PHHY2012FR070990

PATIENT
  Age: 38 Year
  Sex: Male
  Weight: 45 kg

DRUGS (2)
  1. LEPONEX [Suspect]
     Indication: SCHIZOPHRENIA
     Dosage: 75 mg /day
     Route: 048
     Dates: start: 20120608
  2. LEPONEX [Suspect]
     Dosage: 200 mg/day ( increments of 25 mg to reach 200 mg daily)
     Route: 048
     Dates: end: 20120731

REACTIONS (6)
  - Pulmonary mycosis [Recovering/Resolving]
  - Systemic mycosis [Recovering/Resolving]
  - Agranulocytosis [Recovered/Resolved]
  - Colitis [Not Recovered/Not Resolved]
  - Lung disorder [Not Recovered/Not Resolved]
  - Anaemia [Not Recovered/Not Resolved]
